FAERS Safety Report 14657772 (Version 1)
Quarter: 2018Q1

REPORT INFORMATION
  Report Type: Report from Study
  Country: US (occurrence: US)
  Receive Date: 20180320
  Receipt Date: 20180320
  Transmission Date: 20180509
  Serious: No
  Sender: FDA-Public Use
  Company Number: US-AMGEN-USASL2018037140

PATIENT
  Sex: Female

DRUGS (1)
  1. ENBREL [Suspect]
     Active Substance: ETANERCEPT
     Indication: ANKYLOSING SPONDYLITIS
     Dosage: 50 MG, QWK
     Route: 065

REACTIONS (8)
  - Migraine [Unknown]
  - Injection site erythema [Unknown]
  - Abdominal pain upper [Unknown]
  - Injection site pain [Unknown]
  - Nausea [Unknown]
  - Injection site oedema [Unknown]
  - Injection site warmth [Unknown]
  - Injection site pruritus [Unknown]
